FAERS Safety Report 10722417 (Version 2)
Quarter: 2015Q1

REPORT INFORMATION
  Report Type: Spontaneous
  Country: FR (occurrence: FR)
  Receive Date: 20150119
  Receipt Date: 20150128
  Transmission Date: 20150721
  Serious: Yes (Hospitalization)
  Sender: FDA-Public Use
  Company Number: FR-AMGEN-FRASP2015003650

PATIENT
  Age: 42 Year
  Sex: Female
  Weight: 50 kg

DRUGS (18)
  1. FILGRASTIM [Suspect]
     Active Substance: FILGRASTIM
     Dosage: 300 MUG, UNK
     Route: 058
     Dates: start: 20141001
  2. FILGRASTIM [Suspect]
     Active Substance: FILGRASTIM
     Dosage: 300 MUG, UNK
     Route: 058
     Dates: start: 20141014
  3. FILGRASTIM [Suspect]
     Active Substance: FILGRASTIM
     Dosage: 300 MUG, UNK
     Route: 058
     Dates: start: 20141013
  4. MABTHERA [Suspect]
     Active Substance: RITUXIMAB
     Indication: B-CELL LYMPHOMA
     Dosage: 375 MG/M2, 1 IN 3 WK
     Route: 042
     Dates: start: 20140918
  5. CYCLOPHOSPHAMIDE. [Suspect]
     Active Substance: CYCLOPHOSPHAMIDE
     Dosage: UNK
     Route: 065
     Dates: start: 20141008
  6. PREDNISONE. [Suspect]
     Active Substance: PREDNISONE
     Dosage: UNK
     Route: 065
     Dates: start: 20141008
  7. NEULASTA [Suspect]
     Active Substance: PEGFILGRASTIM
     Indication: NEUTROPENIA
     Dosage: UNK
     Route: 065
  8. VINCRISTINE [Suspect]
     Active Substance: VINCRISTINE
     Indication: B-CELL LYMPHOMA
     Dosage: UNK
     Route: 065
     Dates: start: 20140918
  9. PREDNISONE. [Suspect]
     Active Substance: PREDNISONE
     Indication: B-CELL LYMPHOMA
     Dosage: UNK
     Route: 065
     Dates: start: 20140918
  10. MABTHERA [Suspect]
     Active Substance: RITUXIMAB
     Dosage: UNK
     Route: 042
     Dates: start: 20141008
  11. CYCLOPHOSPHAMIDE. [Suspect]
     Active Substance: CYCLOPHOSPHAMIDE
     Indication: B-CELL LYMPHOMA
     Dosage: UNK
     Route: 065
     Dates: start: 20140918
  12. BACTRIM [Concomitant]
     Active Substance: SULFAMETHOXAZOLE\TRIMETHOPRIM
     Dosage: UNK, FOR 2 OR 3 DAYS ON DAY 8 OF THE 1ST CYCLE.
  13. DOXORUBICIN [Suspect]
     Active Substance: DOXORUBICIN
     Indication: B-CELL LYMPHOMA
     Dosage: UNK
     Route: 065
     Dates: start: 20140918
  14. DOXORUBICIN [Suspect]
     Active Substance: DOXORUBICIN
     Dosage: UNK
     Route: 065
     Dates: start: 20141008
  15. FILGRASTIM [Suspect]
     Active Substance: FILGRASTIM
     Dosage: 300 MUG, UNK
     Route: 065
     Dates: start: 20141015, end: 20141015
  16. VINCRISTINE [Suspect]
     Active Substance: VINCRISTINE
     Dosage: UNK
     Route: 065
     Dates: start: 20141008
  17. GRANOCYTE [Suspect]
     Active Substance: LENOGRASTIM
     Indication: PRODUCT USED FOR UNKNOWN INDICATION
     Dosage: UNK
     Route: 065
  18. FILGRASTIM [Suspect]
     Active Substance: FILGRASTIM
     Indication: FEBRILE NEUTROPENIA
     Dosage: 300 MUG, 1 IN 1 D
     Route: 058
     Dates: start: 20140930

REACTIONS (2)
  - Febrile neutropenia [Unknown]
  - Obliterative bronchiolitis [Not Recovered/Not Resolved]

NARRATIVE: CASE EVENT DATE: 20141001
